FAERS Safety Report 18806249 (Version 2)
Quarter: 2021Q1

REPORT INFORMATION
  Report Type: Spontaneous
  Country: ES (occurrence: ES)
  Receive Date: 20210128
  Receipt Date: 20210216
  Transmission Date: 20210419
  Serious: Yes (Other)
  Sender: FDA-Public Use
  Company Number: ES-TEIKOKU PHARMA USA-TPU2021-00039

PATIENT
  Age: 84 Year
  Sex: Male

DRUGS (5)
  1. TRANSTEC 35 MICROGRAMOS/H [Suspect]
     Active Substance: BUPRENORPHINE
     Route: 062
     Dates: start: 20201219, end: 20210113
  2. OLMESARTAN MEDOXOMIL. [Concomitant]
     Active Substance: OLMESARTAN MEDOXOMIL
  3. TAMSULOSINA [TAMSULOSIN HYDROCHLORIDE] [Concomitant]
     Active Substance: TAMSULOSIN HYDROCHLORIDE
  4. VERSATIS [Suspect]
     Active Substance: LIDOCAINE
     Indication: OSTEITIS
     Route: 003
  5. ADIRO [Concomitant]
     Active Substance: ASPIRIN

REACTIONS (3)
  - Dyspnoea [Recovered/Resolved]
  - Off label use [Recovered/Resolved]
  - Anxiety [Recovered/Resolved]

NARRATIVE: CASE EVENT DATE: 20210106
